FAERS Safety Report 19241327 (Version 1)
Quarter: 2021Q2

REPORT INFORMATION
  Report Type: Spontaneous
  Country: JP (occurrence: JP)
  Receive Date: 20210511
  Receipt Date: 20210511
  Transmission Date: 20210717
  Serious: Yes (Hospitalization, Other)
  Sender: FDA-Public Use
  Company Number: JP-AUROBINDO-AUR-APL-2021-018546

PATIENT
  Sex: Male

DRUGS (3)
  1. MELPHALAN. [Suspect]
     Active Substance: MELPHALAN
     Indication: AUTOLOGOUS HAEMATOPOIETIC STEM CELL TRANSPLANT
     Dosage: UNKNOWN
     Route: 065
  2. SULFAMETHOXAZOLE AND TRIMETHOPRIM [Concomitant]
     Active Substance: SULFAMETHOXAZOLE\TRIMETHOPRIM
     Indication: PROPHYLAXIS
     Dosage: UNKNOWN
     Route: 065
  3. BUSULFAN. [Suspect]
     Active Substance: BUSULFAN
     Indication: NEUROBLASTOMA
     Dosage: 1 MILLIGRAM/KILOGRAM
     Route: 042
     Dates: start: 20160324, end: 20160327

REACTIONS (3)
  - Venoocclusive liver disease [Recovering/Resolving]
  - Pneumocystis jirovecii pneumonia [Recovered/Resolved]
  - Product use in unapproved indication [Unknown]

NARRATIVE: CASE EVENT DATE: 20160408
